FAERS Safety Report 20496195 (Version 1)
Quarter: 2022Q1

REPORT INFORMATION
  Report Type: Spontaneous
  Country: US (occurrence: US)
  Receive Date: 20220221
  Receipt Date: 20220221
  Transmission Date: 20220423
  Serious: Yes (Other)
  Sender: FDA-Public Use
  Company Number: US-GLAXOSMITHKLINE-US2022GSK027572

PATIENT
  Sex: Male

DRUGS (14)
  1. ZANTAC [Suspect]
     Active Substance: RANITIDINE HYDROCHLORIDE
     Indication: Dyspepsia
     Dosage: UNK UNK, QD
     Route: 065
     Dates: start: 200801, end: 201401
  2. ZANTAC [Suspect]
     Active Substance: RANITIDINE HYDROCHLORIDE
     Dosage: UNK,ONCE OR TWICE
     Route: 065
     Dates: start: 200801, end: 201401
  3. ZANTAC [Suspect]
     Active Substance: RANITIDINE HYDROCHLORIDE
     Indication: Dyspepsia
     Dosage: UNK UNK, QD
     Route: 065
     Dates: start: 200801, end: 201401
  4. ZANTAC [Suspect]
     Active Substance: RANITIDINE HYDROCHLORIDE
     Dosage: UNK UNK,ONCE OR TWICE
     Route: 065
     Dates: start: 200801, end: 201401
  5. ZANTAC [Suspect]
     Active Substance: RANITIDINE HYDROCHLORIDE
     Indication: Dyspepsia
     Dosage: UNK UNK, QD
     Route: 065
     Dates: start: 200801, end: 201401
  6. ZANTAC [Suspect]
     Active Substance: RANITIDINE HYDROCHLORIDE
     Dosage: UNK, ONCE OR TWICE
     Route: 065
     Dates: start: 200801, end: 201401
  7. RANITIDINE [Suspect]
     Active Substance: RANITIDINE
     Indication: Dyspepsia
     Dosage: UNK UNK, QD
     Route: 065
     Dates: start: 200801, end: 201401
  8. RANITIDINE [Suspect]
     Active Substance: RANITIDINE
     Dosage: UNK UNK, ONCE OR TWICE
     Route: 065
     Dates: start: 200801, end: 201401
  9. RANITIDINE [Suspect]
     Active Substance: RANITIDINE
     Indication: Dyspepsia
     Dosage: UNK, QD
     Route: 065
     Dates: start: 200801, end: 201401
  10. RANITIDINE [Suspect]
     Active Substance: RANITIDINE
     Dosage: UNK,ONCE OR TWICE
     Route: 065
     Dates: start: 200801, end: 201401
  11. RANITIDINE [Suspect]
     Active Substance: RANITIDINE
     Indication: Dyspepsia
     Dosage: UNK, QD
     Route: 065
     Dates: start: 200801, end: 201401
  12. RANITIDINE [Suspect]
     Active Substance: RANITIDINE
     Dosage: UNK, ONCE OR TWICE
     Route: 065
     Dates: start: 200801, end: 201401
  13. RANITIDINE [Suspect]
     Active Substance: RANITIDINE
     Indication: Dyspepsia
     Dosage: UNK, QD
     Route: 065
     Dates: start: 200801, end: 201401
  14. RANITIDINE [Suspect]
     Active Substance: RANITIDINE
     Dosage: UNK,ONCE OR TWICE
     Route: 065
     Dates: start: 200801, end: 201401

REACTIONS (1)
  - Bladder cancer [Unknown]
